FAERS Safety Report 10948743 (Version 1)
Quarter: 2015Q1

REPORT INFORMATION
  Report Type: Spontaneous
  Country: US (occurrence: None)
  Receive Date: 20150323
  Receipt Date: 20150323
  Transmission Date: 20150721
  Serious: Yes (Hospitalization)
  Sender: FDA-Public Use
  Company Number: None

PATIENT
  Age: 72 Year
  Sex: Female
  Weight: 65 kg

DRUGS (5)
  1. LIPITOR [Concomitant]
     Active Substance: ATORVASTATIN CALCIUM
  2. VENLAFAXINE XR (EFFEXOR XR) [Concomitant]
  3. CLOPIDOGREL [Suspect]
     Active Substance: CLOPIDOGREL BISULFATE
     Indication: PRODUCT USED FOR UNKNOWN INDICATION
     Dosage: 1 TABLET, QD, ORAL
     Route: 048
  4. LISINOPRIL-HYDROCHLOROTHIAZIDE (PRINZIDE, ZESTORETIC) [Concomitant]
  5. CARVEDILOL (COREG) [Concomitant]

REACTIONS (9)
  - Haematemesis [None]
  - Hypotension [None]
  - Asthenia [None]
  - Duodenitis haemorrhagic [None]
  - Faeces discoloured [None]
  - Duodenal ulcer [None]
  - Barrett^s oesophagus [None]
  - Abdominal pain upper [None]
  - Diverticulum intestinal [None]

NARRATIVE: CASE EVENT DATE: 20140921
